APPROVED DRUG PRODUCT: AZELASTINE HYDROCHLORIDE
Active Ingredient: AZELASTINE HYDROCHLORIDE
Strength: 0.05%
Dosage Form/Route: SOLUTION/DROPS;OPHTHALMIC
Application: A202305 | Product #001 | TE Code: AT
Applicant: SANDOZ INC
Approved: May 31, 2012 | RLD: No | RS: Yes | Type: RX